FAERS Safety Report 16119867 (Version 2)
Quarter: 2019Q2

REPORT INFORMATION
  Report Type: Spontaneous
  Country: IT (occurrence: IT)
  Receive Date: 20190326
  Receipt Date: 20190516
  Transmission Date: 20190711
  Serious: Yes (Hospitalization, Other)
  Sender: FDA-Public Use
  Company Number: PHHY2019IT056285

PATIENT
  Age: 17 Year
  Sex: Male

DRUGS (7)
  1. MYCOPHENOLATE MOFETIL. [Suspect]
     Active Substance: MYCOPHENOLATE MOFETIL
     Indication: CENTRAL NERVOUS SYSTEM VASCULITIS
     Dosage: 2 G, QD (MISUSE)
     Route: 065
  2. PREDNISONE. [Suspect]
     Active Substance: PREDNISONE
     Indication: CENTRAL NERVOUS SYSTEM VASCULITIS
     Dosage: 20 MG, QD (MISUSE)
     Route: 048
  3. PREDNISONE. [Suspect]
     Active Substance: PREDNISONE
     Dosage: 19 MG, QD
     Route: 048
  4. RITUXIMAB. [Suspect]
     Active Substance: RITUXIMAB
     Indication: CENTRAL NERVOUS SYSTEM VASCULITIS
     Dosage: UNK
     Route: 065
  5. AZATHIOPRINE. [Suspect]
     Active Substance: AZATHIOPRINE
     Indication: CENTRAL NERVOUS SYSTEM VASCULITIS
     Route: 065
  6. METHYLPREDNISOLONE. [Suspect]
     Active Substance: METHYLPREDNISOLONE
     Indication: CENTRAL NERVOUS SYSTEM VASCULITIS
     Dosage: (MISUSE)
     Route: 042
  7. CYCLOPHOSPHAMIDE. [Suspect]
     Active Substance: CYCLOPHOSPHAMIDE
     Indication: CENTRAL NERVOUS SYSTEM VASCULITIS
     Dosage: (MISUSE)
     Route: 042

REACTIONS (6)
  - Central nervous system vasculitis [Recovering/Resolving]
  - Condition aggravated [Recovering/Resolving]
  - Seizure [Recovering/Resolving]
  - Drug ineffective [Recovering/Resolving]
  - Optic neuritis [Recovering/Resolving]
  - Off label use [Unknown]
